FAERS Safety Report 6465294-X (Version None)
Quarter: 2009Q4

REPORT INFORMATION
  Report Type: 
  Country: None (occurrence: None)
  Receive Date: 20091201
  Receipt Date: 20091118
  Transmission Date: 20100525
  Serious: Yes (Life-Threatening, Hospitalization)
  Sender: FDA-Public Use
  Company Number: JP-GENENTECH-292925

PATIENT
  Sex: Female

DRUGS (1)
  1. HERCEPTIN [Suspect]
     Indication: BREAST CANCER METASTATIC
     Dosage: 8 MG/KG, QD
     Route: 041
     Dates: start: 20090731, end: 20090821

REACTIONS (3)
  - DISSEMINATED INTRAVASCULAR COAGULATION [None]
  - INFUSION RELATED REACTION [None]
  - LUNG DISORDER [None]
